FAERS Safety Report 5322822-5 (Version None)
Quarter: 2007Q2

REPORT INFORMATION
  Report Type: 
  Country: None (occurrence: None)
  Receive Date: 20070511
  Receipt Date: 20070429
  Transmission Date: 20071010
  Serious: Yes (Hospitalization, Other)
  Sender: FDA-Public Use
  Company Number: US-PFIZER INC-2007035340

PATIENT
  Sex: Male
  Weight: 66.818 kg

DRUGS (5)
  1. CHANTIX [Suspect]
     Indication: SMOKING CESSATION THERAPY
     Dates: start: 20070424, end: 20070428
  2. ZOCOR [Concomitant]
  3. ANTIEMETICS AND ANTINAUSEANTS [Concomitant]
  4. LAXATIVES [Concomitant]
  5. ANALGESICS [Concomitant]

REACTIONS (13)
  - CONVULSION [None]
  - HAEMATOCRIT [None]
  - HAEMATOCRIT DECREASED [None]
  - HAEMOGLOBIN [None]
  - HAEMOGLOBIN DECREASED [None]
  - HEART RATE DECREASED [None]
  - LOSS OF CONSCIOUSNESS [None]
  - LYMPHOCYTE COUNT [None]
  - MEAN CELL HAEMOGLOBIN [None]
  - MEAN CELL HAEMOGLOBIN CONCENTRATION [None]
  - RED BLOOD CELL COUNT [None]
  - UNEVALUABLE EVENT [None]
  - WHITE BLOOD CELL COUNT [None]
